FAERS Safety Report 6607308-X (Version None)
Quarter: 2010Q1

REPORT INFORMATION
  Report Type: 
  Country: None (occurrence: None)
  Receive Date: 20100228
  Receipt Date: 20090409
  Transmission Date: 20100710
  Serious: Yes (Other)
  Sender: FDA-Public Use
  Company Number: US-ALLERGAN-0903031US

PATIENT
  Age: 87 Year
  Sex: Female

DRUGS (13)
  1. BOTOX [Suspect]
     Indication: TORTICOLLIS
     Dosage: 100 UNITS, SINGLE
     Route: 030
     Dates: start: 20080925, end: 20080925
  2. COLCHICINE [Concomitant]
  3. SYNTHROID [Concomitant]
  4. ASACOL [Concomitant]
  5. DITROPAN [Concomitant]
  6. LASIX [Concomitant]
  7. NORVASC [Concomitant]
  8. PRILOSEC [Concomitant]
  9. POTASSIUM CHLORIDE [Concomitant]
  10. TIMOPTIC [Concomitant]
  11. TRAVATAN [Concomitant]
  12. CLINDAMYCIN [Concomitant]
  13. VALTREX [Concomitant]

REACTIONS (5)
  - DRUG ADMINISTERED AT INAPPROPRIATE SITE [None]
  - DRUG INEFFECTIVE [None]
  - INJECTION SITE PAIN [None]
  - MUSCLE SPASMS [None]
  - MUSCULAR WEAKNESS [None]
